FAERS Safety Report 5319930-1 (Version None)
Quarter: 2007Q2

REPORT INFORMATION
  Report Type: 
  Country: None (occurrence: None)
  Receive Date: 20070509
  Receipt Date: 20070501
  Transmission Date: 20071010
  Serious: Yes (Death, Other)
  Sender: FDA-Public Use
  Company Number: US-JNJFOC-20070302602

PATIENT
  Sex: Female
  Weight: 130.64 kg

DRUGS (9)
  1. LEVAQUIN [Suspect]
     Indication: WHITE BLOOD CELL COUNT INCREASED
     Route: 042
  2. LEVAQUIN [Suspect]
     Indication: ABDOMINAL PAIN LOWER
     Route: 042
  3. ROCEPHIN [Suspect]
     Indication: WHITE BLOOD CELL COUNT INCREASED
     Route: 042
  4. ROCEPHIN [Suspect]
     Indication: ABDOMINAL PAIN
     Route: 042
  5. OPTIRAY 320 [Suspect]
     Indication: ABDOMEN SCAN
     Route: 042
  6. DEMEROL [Concomitant]
     Indication: PAIN
     Route: 042
  7. PHENERGAN HCL [Concomitant]
     Indication: VOMITING
     Route: 042
  8. PHENERGAN HCL [Concomitant]
     Indication: NAUSEA
     Route: 042
  9. SODIUM CHLORIDE [Concomitant]
     Route: 042

REACTIONS (3)
  - ANAPHYLACTIC REACTION [None]
  - ASTHMA [None]
  - CARDIOPULMONARY FAILURE [None]
